FAERS Safety Report 10005487 (Version 5)
Quarter: 2014Q4

REPORT INFORMATION
  Report Type: Spontaneous
  Country: IT (occurrence: IT)
  Receive Date: 20140313
  Receipt Date: 20141114
  Transmission Date: 20150528
  Serious: Yes (Other)
  Sender: FDA-Public Use
  Company Number: IT-MERCK-1403ITA004756

PATIENT
  Age: 46 Year
  Sex: Male
  Weight: 78.5 kg

DRUGS (4)
  1. COPEGUS [Interacting]
     Active Substance: RIBAVIRIN
     Indication: ANTIVIRAL TREATMENT
     Dosage: 1200MG DAILY
     Route: 048
     Dates: start: 20130409, end: 20130624
  2. VICTRELIS [Suspect]
     Active Substance: BOCEPREVIR
     Indication: ANTIVIRAL TREATMENT
     Dosage: 4 CAPSULE THRICE DAILY
     Route: 048
     Dates: start: 20130513
  3. PEGASYS [Interacting]
     Active Substance: PEGINTERFERON ALFA-2A
     Indication: ANTIVIRAL TREATMENT
     Dosage: 180MCG WEEKLY
     Route: 058
     Dates: start: 20130409
  4. COPEGUS [Interacting]
     Active Substance: RIBAVIRIN
     Dosage: 600 MG (3 CAPSULES DAILY)
     Route: 048
     Dates: start: 20130624

REACTIONS (2)
  - Drug interaction [Recovered/Resolved]
  - Pancytopenia [Recovered/Resolved]

NARRATIVE: CASE EVENT DATE: 20130624
